FAERS Safety Report 5259988-1 (Version None)
Quarter: 2007Q1

REPORT INFORMATION
  Report Type: 
  Country: None (occurrence: None)
  Receive Date: 20070309
  Receipt Date: 20060123
  Transmission Date: 20070707
  Serious: No
  Sender: FDA-Public Use
  Company Number: US-GLAXOSMITHKLINE-A0590204A

PATIENT
  Age: 62 Year
  Sex: Female

DRUGS (1)
  1. NICORETTE (MINT) [Suspect]
     Dates: end: 20060119

REACTIONS (4)
  - GINGIVAL SWELLING [None]
  - ORAL MUCOSAL EXFOLIATION [None]
  - STOMATITIS [None]
  - TOOTHACHE [None]
